FAERS Safety Report 11870534 (Version 1)
Quarter: 2015Q4

REPORT INFORMATION
  Report Type: Spontaneous
  Country: US (occurrence: None)
  Receive Date: 20151224
  Receipt Date: 20151224
  Transmission Date: 20160305
  Serious: Yes (Hospitalization)
  Sender: FDA-Public Use
  Company Number: None

PATIENT
  Age: 38 Year
  Sex: Female
  Weight: 75.1 kg

DRUGS (4)
  1. ETOPOSIDE. [Suspect]
     Active Substance: ETOPOSIDE
     Dates: end: 20151204
  2. METHOTREXATE [Suspect]
     Active Substance: METHOTREXATE
  3. ONCASPAR [Suspect]
     Active Substance: PEGASPARGASE
     Dates: end: 20151204
  4. CYTARABINE. [Suspect]
     Active Substance: CYTARABINE
     Dates: end: 20151204

REACTIONS (2)
  - Hypotension [None]
  - Escherichia sepsis [None]

NARRATIVE: CASE EVENT DATE: 20151220
